FAERS Safety Report 20306456 (Version 2)
Quarter: 2022Q1

REPORT INFORMATION
  Report Type: Report from Study
  Country: TR (occurrence: TR)
  Receive Date: 20220106
  Receipt Date: 20220113
  Transmission Date: 20220423
  Serious: Yes (Hospitalization, Other)
  Sender: FDA-Public Use
  Company Number: TR-DSJP-DSE-2021-126993

PATIENT
  Sex: Male
  Weight: 67 kg

DRUGS (1)
  1. EDOXABAN [Suspect]
     Active Substance: EDOXABAN
     Indication: Atrial fibrillation
     Dosage: 30 MG, QD
     Route: 065
     Dates: end: 20210407

REACTIONS (2)
  - Hepatic failure [Not Recovered/Not Resolved]
  - Haemorrhage [Recovered/Resolved]
